FAERS Safety Report 17339542 (Version 5)
Quarter: 2020Q2

REPORT INFORMATION
  Report Type: Report from Study
  Country: BR (occurrence: BR)
  Receive Date: 20200129
  Receipt Date: 20200602
  Transmission Date: 20200713
  Serious: Yes (Death, Hospitalization, Other)
  Sender: FDA-Public Use
  Company Number: BR-TAKEDA-2018TUS025174

PATIENT
  Age: 22 Year
  Sex: Male

DRUGS (14)
  1. PREDNISONE. [Concomitant]
     Active Substance: PREDNISONE
     Dosage: 20 MILLIGRAM, QD
  2. CARVEDILOL. [Concomitant]
     Active Substance: CARVEDILOL
     Indication: PRODUCT USED FOR UNKNOWN INDICATION
     Dosage: 6.25 MILLIGRAM, QD
  3. VEDOLIZUMAB [Suspect]
     Active Substance: VEDOLIZUMAB
     Indication: COLITIS ULCERATIVE
     Dosage: 300 MILLIGRAM
     Route: 042
     Dates: start: 20180423, end: 20200421
  4. URSACOL [Concomitant]
     Active Substance: URSODIOL
     Indication: CHOLANGITIS SCLEROSING
     Dosage: 300 MILLIGRAM
  5. PREDNISONE. [Concomitant]
     Active Substance: PREDNISONE
     Indication: COLITIS ULCERATIVE
     Dosage: 10 MILLIGRAM, QD
  6. AZATHIOPRINE. [Concomitant]
     Active Substance: AZATHIOPRINE
     Dosage: UNK
     Dates: end: 201910
  7. PREDNISOLONE. [Concomitant]
     Active Substance: PREDNISOLONE
     Dosage: 20 MILLIGRAM, QD
  8. MESACOL                            /00747601/ [Concomitant]
     Active Substance: MESALAMINE
     Dosage: 300 MILLIGRAM
  9. PREDNISONE. [Concomitant]
     Active Substance: PREDNISONE
     Dosage: 40 MILLIGRAM, QD
  10. MEBEVERINA [Concomitant]
     Indication: PRODUCT USED FOR UNKNOWN INDICATION
     Dosage: 200 MILLIGRAM, BID
  11. CALCIUM CARBONATE. [Concomitant]
     Active Substance: CALCIUM CARBONATE
     Dosage: 500 MILLIGRAM, QD
  12. MESALAZINE [Concomitant]
     Active Substance: MESALAMINE
     Indication: COLITIS ULCERATIVE
     Dosage: 500 MILLIGRAM
  13. AMITRIPTYLINE [Concomitant]
     Active Substance: AMITRIPTYLINE
     Indication: MYALGIA
     Dosage: UNK UNK, QD
     Dates: start: 202001
  14. CHOLECALCIFEROL [Concomitant]
     Active Substance: CHOLECALCIFEROL
     Indication: VITAMIN SUPPLEMENTATION
     Dosage: 25 MILLIGRAM, 1/WEEK

REACTIONS (20)
  - Oesophageal varices haemorrhage [Unknown]
  - Myalgia [Recovering/Resolving]
  - Cholangitis [Unknown]
  - Asthenia [Unknown]
  - Colitis ulcerative [Unknown]
  - Hypertension [Unknown]
  - Hepatic cirrhosis [Fatal]
  - Renal impairment [Unknown]
  - Bile duct cancer [Fatal]
  - Fatigue [Recovering/Resolving]
  - Fungaemia [Fatal]
  - Gastrointestinal tract irritation [Unknown]
  - Hypotension [Unknown]
  - Anal haemorrhage [Recovered/Resolved]
  - Cardiac arrest [Fatal]
  - Nasopharyngitis [Recovered/Resolved]
  - Oedema [Unknown]
  - Malaise [Unknown]
  - Pneumonia [Unknown]
  - Off label use [Unknown]

NARRATIVE: CASE EVENT DATE: 201808
